FAERS Safety Report 12047028 (Version 3)
Quarter: 2016Q1

REPORT INFORMATION
  Report Type: Spontaneous
  Country: DE (occurrence: DE)
  Receive Date: 20160209
  Receipt Date: 20160309
  Transmission Date: 20160526
  Serious: Yes (Death, Life-Threatening)
  Sender: FDA-Public Use
  Company Number: DE-ROCHE-1707976

PATIENT
  Age: 81 Year
  Sex: Male
  Weight: 83 kg

DRUGS (2)
  1. ACTILYSE [Suspect]
     Active Substance: ALTEPLASE
     Indication: ISCHAEMIC STROKE
     Route: 042
     Dates: start: 20160128, end: 20160128
  2. DELIX (GERMANY) [Concomitant]
     Route: 065

REACTIONS (3)
  - Brain herniation [Fatal]
  - Subarachnoid haemorrhage [Unknown]
  - Cerebral haemorrhage [Unknown]

NARRATIVE: CASE EVENT DATE: 20160128
